FAERS Safety Report 8339007-0 (Version None)
Quarter: 2012Q2

REPORT INFORMATION
  Report Type: 
  Country: None (occurrence: None)
  Receive Date: 20120507
  Receipt Date: 20120501
  Transmission Date: 20120825
  Serious: Yes (Hospitalization)
  Sender: FDA-Public Use
  Company Number: US-BAYER-2011-086228

PATIENT
  Age: 35 Year
  Sex: Female
  Weight: 106.58 kg

DRUGS (9)
  1. OXYCODONE HCL [Concomitant]
     Indication: PAIN
     Dosage: UNK
     Dates: start: 20031101
  2. YASMIN [Suspect]
     Indication: PREMENSTRUAL SYNDROME
     Dosage: UNK
     Dates: start: 20030701, end: 20031001
  3. PROZAC [Concomitant]
     Indication: DEPRESSION
     Dosage: UNK
     Dates: start: 19930101
  4. ZOLOFT [Concomitant]
     Dosage: 150 MG, OM
     Route: 048
     Dates: start: 20030709, end: 20030926
  5. TOPAMAX [Concomitant]
     Dosage: UNK
     Route: 048
     Dates: start: 20030709, end: 20030926
  6. CIPROFLOXACIN [Concomitant]
     Indication: INFECTION
     Dosage: UNK
     Dates: start: 20031101
  7. AMBIEN [Concomitant]
     Dosage: 10 MG, QD
     Route: 048
     Dates: start: 20030926
  8. EFFEXOR [Concomitant]
     Dosage: UNK
     Dates: start: 20030926
  9. YASMIN [Suspect]

REACTIONS (4)
  - THROMBOSIS [None]
  - DEPRESSION [None]
  - RENAL VEIN THROMBOSIS [None]
  - ANXIETY [None]
